FAERS Safety Report 19905483 (Version 1)
Quarter: 2021Q4

REPORT INFORMATION
  Report Type: Report from Study
  Country: US (occurrence: US)
  Receive Date: 20211001
  Receipt Date: 20211001
  Transmission Date: 20220303
  Serious: Yes (Hospitalization, Other)
  Sender: FDA-Public Use
  Company Number: US-MYLANLABS-2021M1068253

PATIENT
  Age: 17 Year
  Sex: Female

DRUGS (4)
  1. METHOTREXATE [Suspect]
     Active Substance: METHOTREXATE
     Indication: Juvenile idiopathic arthritis
     Dosage: UNK
     Route: 065
  2. METHOTREXATE [Suspect]
     Active Substance: METHOTREXATE
     Indication: Immunosuppressant drug therapy
  3. ITRACONAZOLE [Interacting]
     Active Substance: ITRACONAZOLE
     Indication: Histoplasmosis disseminated
     Dosage: UNK
     Route: 065
  4. ABATACEPT [Concomitant]
     Active Substance: ABATACEPT
     Indication: Juvenile idiopathic arthritis
     Dosage: UNK
     Route: 065

REACTIONS (3)
  - Histoplasmosis disseminated [Recovering/Resolving]
  - Drug interaction [Unknown]
  - Cushing^s syndrome [Unknown]
